FAERS Safety Report 5457692-8 (Version None)
Quarter: 2007Q3

REPORT INFORMATION
  Report Type: 
  Country: None (occurrence: None)
  Receive Date: 20070918
  Receipt Date: 20070906
  Transmission Date: 20080115
  Serious: Yes (Other)
  Sender: FDA-Public Use
  Company Number: GB-PFIZER INC-2007075235

PATIENT
  Sex: Male

DRUGS (1)
  1. CHAMPIX [Suspect]
     Route: 048

REACTIONS (5)
  - ABNORMAL DREAMS [None]
  - DISORIENTATION [None]
  - HALLUCINATION [None]
  - NAUSEA [None]
  - PAIN [None]
